FAERS Safety Report 5741938-2 (Version None)
Quarter: 2008Q2

REPORT INFORMATION
  Report Type: 
  Country: None (occurrence: None)
  Receive Date: 20080519
  Receipt Date: 20071105
  Transmission Date: 20081010
  Serious: No
  Sender: FDA-Public Use
  Company Number: US-KINGPHARMUSA00001-K200701429

PATIENT

DRUGS (1)
  1. TAPAZOLE [Suspect]
     Indication: HYPERTHYROIDISM
     Dosage: 10 MG, QD
     Route: 048
     Dates: start: 19990101, end: 20070101

REACTIONS (1)
  - DYSGEUSIA [None]
